FAERS Safety Report 6587535-0 (Version None)
Quarter: 2010Q1

REPORT INFORMATION
  Report Type: 
  Country: None (occurrence: None)
  Receive Date: 20100218
  Receipt Date: 20070608
  Transmission Date: 20100710
  Serious: Yes (Hospitalization, Other)
  Sender: FDA-Public Use
  Company Number: US-ASTRAZENECA-2006UW09099

PATIENT
  Age: 383 Month
  Sex: Female
  Weight: 94.8 kg

DRUGS (11)
  1. SEROQUEL [Suspect]
     Indication: DEPRESSION
     Dosage: 25-200MG
     Route: 048
     Dates: start: 20030101, end: 20040101
  2. SEROQUEL [Suspect]
     Dosage: 25-200 MG
     Route: 048
     Dates: start: 20040615
  3. ZYPREXA [Suspect]
     Route: 048
     Dates: start: 20021115
  4. DILUADID [Concomitant]
     Indication: PAIN
     Route: 048
     Dates: start: 20050111
  5. VICODIN [Concomitant]
     Indication: PAIN
     Dosage: 750 MG 3 X A DAY,750 MILIGRAMS 1-2 TABLET THREE TIMES A DAY AS NEEDED
     Dates: start: 20021227
  6. PAXIL CR/PAXIL [Concomitant]
     Dosage: 20 MG QHS, 25 MG
     Route: 048
     Dates: start: 20040326
  7. PREVACID [Concomitant]
     Dates: start: 20020210
  8. HYOSCYAMINE SU [Concomitant]
     Dates: start: 20041011
  9. FUROSEMIDE [Concomitant]
     Dates: start: 20020822
  10. ACETAMINOPHEN AND HYDROCODONE BITARTRATE [Concomitant]
     Dates: start: 20020918
  11. CLONAZEPAM [Concomitant]
     Dates: start: 20040917

REACTIONS (6)
  - PANCREATIC CYST [None]
  - PANCREATIC PSEUDOCYST [None]
  - PANCREATITIS [None]
  - PANCREATITIS ACUTE [None]
  - PANCREATITIS CHRONIC [None]
  - PANCREATITIS RELAPSING [None]
